FAERS Safety Report 5902506-2 (Version None)
Quarter: 2008Q3

REPORT INFORMATION
  Report Type: 
  Country: None (occurrence: None)
  Receive Date: 20080925
  Receipt Date: 20080910
  Transmission Date: 20090109
  Serious: Yes (Life-Threatening, Hospitalization)
  Sender: FDA-Public Use
  Company Number: 2008002010

PATIENT
  Age: 57 Year
  Sex: Male
  Weight: 79.4 kg

DRUGS (17)
  1. ERLOTINIB (ERLOTINIB)(TABLET)(ERLOTINIB) [Suspect]
     Indication: OROPHARYNGEAL CANCER STAGE UNSPECIFIED
     Dosage: (150 MG,QD),ORAL
     Route: 048
  2. BEVACIZUMAB (INJECTION FOR INFUSION) [Suspect]
     Indication: OROPHARYNGEAL CANCER STAGE UNSPECIFIED
     Dosage: (15 MG/KG,DAYS 1 AND 22), INTRAVENOUS
     Route: 042
  3. CARBOPLATIN [Suspect]
     Dosage: INTRAVENOUS
     Route: 042
  4. FLUOROURACIL [Suspect]
     Dosage: (200 MG/M2), INTRAVENOUS
     Route: 042
  5. PACLITAXEL [Suspect]
     Dosage: (200 MG/M2), INTRAVENOUS
     Route: 042
  6. RADIATION [Suspect]
  7. LEVOPHED [Suspect]
  8. COUMADIN [Concomitant]
  9. PREVACID [Concomitant]
  10. COLACE (DOCUSATE SODIUM) [Concomitant]
  11. CIPRO [Concomitant]
  12. LORTAB [Concomitant]
  13. LEVOTHYROXINE SODIUM [Concomitant]
  14. ASPIRIN [Concomitant]
  15. MULTIVITAMINS NOS (MULTIVITAMINS) [Concomitant]
  16. LORAZEPAM [Concomitant]
  17. COMPAZINE [Concomitant]

REACTIONS (24)
  - ABDOMINAL SEPSIS [None]
  - ACTIVATED PARTIAL THROMBOPLASTIN TIME PROLONGED [None]
  - ACUTE RESPIRATORY FAILURE [None]
  - ATRIOVENTRICULAR BLOCK FIRST DEGREE [None]
  - BACTERIA URINE IDENTIFIED [None]
  - BLOOD CALCIUM DECREASED [None]
  - BLOOD UREA INCREASED [None]
  - GASTROINTESTINAL HAEMORRHAGE [None]
  - GASTROINTESTINAL NECROSIS [None]
  - HAEMATOCRIT DECREASED [None]
  - HAEMOGLOBIN DECREASED [None]
  - INTESTINAL PERFORATION [None]
  - LUNG CONSOLIDATION [None]
  - PERICARDIAL EFFUSION [None]
  - PNEUMONIA KLEBSIELLA [None]
  - POST PROCEDURAL HAEMORRHAGE [None]
  - PROTHROMBIN TIME PROLONGED [None]
  - PSEUDOMONAS INFECTION [None]
  - RENAL FAILURE [None]
  - STAPHYLOCOCCAL INFECTION [None]
  - STREPTOCOCCAL INFECTION [None]
  - SUBCUTANEOUS EMPHYSEMA [None]
  - TACHYCARDIA [None]
  - WOUND INFECTION [None]
